FAERS Safety Report 4337385-0 (Version None)
Quarter: 2004Q1

REPORT INFORMATION
  Report Type: 
  Country: None (occurrence: None)
  Receive Date: 20040329
  Receipt Date: 20040114
  Transmission Date: 20041129
  Serious: No
  Sender: FDA-Public Use
  Company Number: USA040156679

PATIENT
  Age: 7 Year
  Sex: Male
  Weight: 21 kg

DRUGS (2)
  1. STRATTERA [Suspect]
     Indication: ATTENTION DEFICIT/HYPERACTIVITY DISORDER
     Dosage: 25 MG/DAY
     Dates: start: 20040103, end: 20040114
  2. ADDERALL 10 [Concomitant]

REACTIONS (3)
  - AGGRESSION [None]
  - ANGER [None]
  - MOOD SWINGS [None]
